FAERS Safety Report 6248943-0 (Version None)
Quarter: 2009Q2

REPORT INFORMATION
  Report Type: 
  Country: None (occurrence: None)
  Receive Date: 20090629
  Receipt Date: 20090617
  Transmission Date: 20091009
  Serious: Yes (Hospitalization)
  Sender: FDA-Public Use
  Company Number: NZ-AVENTIS-200916324GDDC

PATIENT
  Age: 62 Year
  Sex: Male

DRUGS (1)
  1. LEFLUNOMIDE [Suspect]
     Route: 048

REACTIONS (2)
  - DIARRHOEA [None]
  - PULMONARY EMBOLISM [None]
